FAERS Safety Report 4446397-8 (Version None)
Quarter: 2004Q3

REPORT INFORMATION
  Report Type: 
  Country: None (occurrence: None)
  Receive Date: 20040907
  Receipt Date: 20040824
  Transmission Date: 20050211
  Serious: Yes (Other)
  Sender: FDA-Public Use
  Company Number: 2004059627

PATIENT
  Sex: Female
  Weight: 54.4316 kg

DRUGS (12)
  1. NAVANE [Suspect]
     Indication: ILL-DEFINED DISORDER
     Dates: start: 19810101, end: 20040401
  2. TIKOSYN [Suspect]
     Indication: ATRIAL FIBRILLATION
     Dosage: 1 MG (0.5 MG, 2 IN 1 D), ORAL
     Route: 048
     Dates: start: 20040501
  3. LITHIUM CARBONATE [Suspect]
     Indication: ILL-DEFINED DISORDER
     Dosage: 600 MG, ORAL
     Route: 048
  4. METOCLOPRAMIDE [Suspect]
     Indication: GASTROINTESTINAL DISORDER
     Dates: end: 20040701
  5. DIGOXIN [Suspect]
     Indication: ATRIAL FIBRILLATION
     Dates: start: 20040501, end: 20040801
  6. SINEMET [Suspect]
     Indication: PARKINSON'S DISEASE
     Dates: start: 20040601
  7. ENTACAPONE (ENTACAPONE) [Concomitant]
  8. FAMOTIDINE [Concomitant]
  9. PENICILLAMINE [Concomitant]
  10. LEVOTHYROXINE SODIUM [Concomitant]
  11. LORAZEPAM [Concomitant]
  12. MESALAZINE (MESALAZINE) [Concomitant]

REACTIONS (11)
  - ASTHENIA [None]
  - BALANCE DISORDER [None]
  - BODY HEIGHT DECREASED [None]
  - CEREBROVASCULAR ACCIDENT [None]
  - DIFFICULTY IN WALKING [None]
  - DRUG LEVEL INCREASED [None]
  - GASTROINTESTINAL DISORDER [None]
  - HEADACHE [None]
  - IRRITABILITY [None]
  - NAUSEA [None]
  - PARKINSON'S DISEASE [None]
